FAERS Safety Report 6036156-7 (Version None)
Quarter: 2009Q1

REPORT INFORMATION
  Report Type: 
  Country: None (occurrence: None)
  Receive Date: 20090113
  Receipt Date: 20081231
  Transmission Date: 20090719
  Serious: No
  Sender: FDA-Public Use
  Company Number: US-B.I. PHARMACEUTICALS,INC./RIDGEFIELD-2008-BP-17971BP

PATIENT
  Sex: Female

DRUGS (7)
  1. MIRAPEX [Suspect]
     Indication: RESTLESS LEGS SYNDROME
     Dosage: 1MG
     Route: 048
  2. AMBIEN [Concomitant]
     Route: 048
  3. VICODIN ES [Concomitant]
     Route: 048
  4. LYRICA [Concomitant]
     Route: 048
  5. PROVIGIL [Concomitant]
     Route: 048
  6. LIDOCAINE [Concomitant]
  7. REQUIP [Concomitant]
     Route: 048

REACTIONS (1)
  - PATHOLOGICAL GAMBLING [None]
